FAERS Safety Report 10068394 (Version 3)
Quarter: 2014Q2

REPORT INFORMATION
  Report Type: Spontaneous
  Country: US (occurrence: US)
  Receive Date: 20140409
  Receipt Date: 20140529
  Transmission Date: 20141212
  Serious: Yes (Death, Life-Threatening, Hospitalization, Other)
  Sender: FDA-Public Use
  Company Number: US-009507513-1404USA004168

PATIENT
  Sex: Female
  Weight: 58.96 kg

DRUGS (2)
  1. JANUVIA [Suspect]
     Indication: TYPE 2 DIABETES MELLITUS
     Dosage: 100 MG, QD
     Route: 048
     Dates: start: 20061127
  2. INSULIN [Concomitant]
     Indication: TYPE 2 DIABETES MELLITUS

REACTIONS (33)
  - Ductal adenocarcinoma of pancreas [Fatal]
  - Hip fracture [Unknown]
  - Bile duct stent insertion [Unknown]
  - Bile duct stent insertion [Unknown]
  - Open reduction of fracture [Not Recovered/Not Resolved]
  - Device occlusion [Unknown]
  - Bile duct stent insertion [Unknown]
  - Bile duct stenosis [Recovering/Resolving]
  - Urinary tract infection [Unknown]
  - Bile duct stent insertion [Unknown]
  - Renal failure chronic [Unknown]
  - Hypercholesterolaemia [Unknown]
  - Coronary artery disease [Unknown]
  - Osteoarthritis [Unknown]
  - Chest pain [Recovered/Resolved]
  - Post procedural haemorrhage [Unknown]
  - Therapeutic embolisation [Unknown]
  - Anaemia postoperative [Unknown]
  - Bile duct stent insertion [Unknown]
  - Urinary tract infection fungal [Unknown]
  - Syncope [Unknown]
  - Cardiomegaly [Unknown]
  - Iron deficiency anaemia [Unknown]
  - Aphthous stomatitis [Unknown]
  - Palpitations [Unknown]
  - Blood glucose increased [Unknown]
  - Central venous catheterisation [Unknown]
  - Hypovolaemia [Unknown]
  - Dehydration [Unknown]
  - Blood sodium decreased [Unknown]
  - Blood potassium decreased [Unknown]
  - Coagulopathy [Unknown]
  - Constipation [Unknown]
